FAERS Safety Report 10215308 (Version 2)
Quarter: 2014Q2

REPORT INFORMATION
  Report Type: Report from Study
  Country: BR (occurrence: BR)
  Receive Date: 20140603
  Receipt Date: 20140603
  Transmission Date: 20141212
  Serious: Yes (Hospitalization, Other)
  Sender: FDA-Public Use
  Company Number: PHHY2013BR090988

PATIENT
  Age: 44 Year
  Sex: Male

DRUGS (18)
  1. EVEROLIMUS [Suspect]
     Indication: RENAL TRANSPLANT
     Dosage: 1.5 MG, BID
  2. EVEROLIMUS [Suspect]
     Indication: IMMUNOSUPPRESSION
     Dosage: 3 MG, BID ON 10 MONTH OF TRANSPLANT
  3. CICLOSPORIN [Suspect]
     Indication: IMMUNOSUPPRESSION
     Dosage: UNK UKN, UNK
  4. CICLOSPORIN [Suspect]
     Dosage: ON 6 YEAR 3 MONTH
  5. PREDNISONE [Suspect]
     Indication: IMMUNOSUPPRESSION
     Dosage: 30 MG, BID
  6. PREDNISONE [Suspect]
     Dosage: 6 YEAR 3 MONTH
  7. PREDNISONE [Suspect]
     Dosage: 30 MG, 5 PO
  8. PREDNISONE [Suspect]
     Dosage: 15 MG, 1 MONTH
  9. PREDNISONE [Suspect]
     Dosage: 5 MG, ON 3 MONTH
  10. PREDNISONE [Suspect]
     Dosage: 5 MG, ON 6 MONTH
  11. PREDNISONE [Suspect]
     Dosage: 5 MG, ON 7 MONTH
  12. PREDNISONE [Suspect]
     Dosage: 5 MG, ON 8 MONTH
  13. PREDNISONE [Suspect]
     Dosage: 5 MG, ON 9 MONTH
  14. PREDNISONE [Suspect]
     Dosage: 5 MG, DAILY ON 10 MONTH
  15. TACROLIMUS [Suspect]
     Indication: IMMUNOSUPPRESSION
     Dosage: 4 MG, BID
  16. TACROLIMUS [Suspect]
     Dosage: 4 MG, BID ON 10 MONTH OF TRANSPLANT
  17. THYMOGLOBULIN [Suspect]
     Indication: IMMUNOSUPPRESSION
     Dosage: 3 MG/KG, UNK
  18. AZATHIOPRINE [Suspect]
     Indication: IMMUNOSUPPRESSION
     Dosage: DICONTINUED ON 6 YEAR 3 MONTHS

REACTIONS (17)
  - Kaposi^s sarcoma [Unknown]
  - Lymphocytic infiltration [Unknown]
  - Renal tubular atrophy [Unknown]
  - Kidney fibrosis [Unknown]
  - Escherichia urinary tract infection [Unknown]
  - Pneumonia [Unknown]
  - Respiratory disorder [Unknown]
  - Sinusitis bacterial [Unknown]
  - HIV infection [Unknown]
  - Syphilis [Unknown]
  - Renal transplant failure [Unknown]
  - Kidney transplant rejection [Unknown]
  - Renal impairment [Unknown]
  - Proteinuria [Unknown]
  - Penile contusion [Unknown]
  - Haemoglobin decreased [Unknown]
  - Oedema peripheral [Unknown]
